FAERS Safety Report 6031129-2 (Version None)
Quarter: 2009Q1

REPORT INFORMATION
  Report Type: 
  Country: None (occurrence: None)
  Receive Date: 20090108
  Receipt Date: 20090105
  Transmission Date: 20090719
  Serious: Yes (Other)
  Sender: FDA-Public Use
  Company Number: GB-WYE-G02878209

PATIENT
  Age: 30 Year
  Sex: Female
  Weight: 125 kg

DRUGS (1)
  1. VENLAFAXINE HYDROCHLORIDE [Suspect]
     Indication: DEPRESSION
     Dosage: 150 MG (FREQUENCY UNKNOWN)
     Route: 048
     Dates: start: 20080908, end: 20081130

REACTIONS (3)
  - DYSPNOEA [None]
  - ELECTROCARDIOGRAM QT INTERVAL ABNORMAL [None]
  - ELECTROCARDIOGRAM QT PROLONGED [None]
